FAERS Safety Report 19670389 (Version 1)
Quarter: 2021Q3

REPORT INFORMATION
  Report Type: Report from Study
  Country: US (occurrence: US)
  Receive Date: 20210806
  Receipt Date: 20210806
  Transmission Date: 20211014
  Serious: No
  Sender: FDA-Public Use
  Company Number: US-SAOL THERAPEUTICS-2021SAO00144

PATIENT
  Age: 52 Year
  Sex: Female
  Weight: 81.63 kg

DRUGS (6)
  1. LIORESAL [Suspect]
     Active Substance: BACLOFEN
     Indication: COMPLEX REGIONAL PAIN SYNDROME
     Dosage: 274.46951 ?G, \DAY; AS OF 09?DEC?2019
     Route: 037
  2. BACLOFEN. [Concomitant]
     Active Substance: BACLOFEN
  3. LIORESAL [Suspect]
     Active Substance: BACLOFEN
     Indication: COMPLEX REGIONAL PAIN SYNDROME
     Dosage: 179.84194 ?G, \DAY; AS OF 25?MAR?2019
     Route: 037
  4. LIORESAL [Suspect]
     Active Substance: BACLOFEN
     Indication: DYSTONIA
     Dosage: 249.70534 ?G, \DAY ; AS OF 31?MAY?2019 AND 26?AUG?2019
     Route: 037
  5. VALIUM [Concomitant]
     Active Substance: DIAZEPAM
  6. LIORESAL [Suspect]
     Active Substance: BACLOFEN
     Indication: DYSTONIA
     Dosage: 215.65462 ?G, \DAY; AS OF 18?APR?2019
     Route: 037

REACTIONS (4)
  - Implant site swelling [Recovered/Resolved]
  - Torticollis [Unknown]
  - Device inversion [Recovered/Resolved]
  - Fall [Recovered/Resolved]

NARRATIVE: CASE EVENT DATE: 20190418
